FAERS Safety Report 19510816 (Version 1)
Quarter: 2021Q3

REPORT INFORMATION
  Report Type: Report from Study
  Country: CO (occurrence: CO)
  Receive Date: 20210709
  Receipt Date: 20210709
  Transmission Date: 20211014
  Serious: Yes (Other)
  Sender: FDA-Public Use
  Company Number: CO-ASTRAZENECA-2021A595200

PATIENT
  Age: 19341 Day
  Sex: Female
  Weight: 64 kg

DRUGS (2)
  1. LYNPARZA [Suspect]
     Active Substance: OLAPARIB
     Indication: OVARIAN CANCER
     Route: 048
     Dates: start: 20200624
  2. LYNPARZA [Suspect]
     Active Substance: OLAPARIB
     Indication: OVARIAN CANCER
     Route: 048
     Dates: start: 20210615

REACTIONS (1)
  - Intracranial mass [Not Recovered/Not Resolved]

NARRATIVE: CASE EVENT DATE: 20210615
